FAERS Safety Report 8090764-0 (Version None)
Quarter: 2012Q1

REPORT INFORMATION
  Report Type: 
  Country: None (occurrence: None)
  Receive Date: 20120125
  Receipt Date: 20120118
  Transmission Date: 20120608
  Serious: Yes (Death, Other)
  Sender: FDA-Public Use
  Company Number: 2010003714

PATIENT
  Age: 65 Year
  Sex: Female
  Weight: 44 kg

DRUGS (9)
  1. NORVASC [Concomitant]
  2. LOXONIN (LOXOPROFEN SODIUM) [Concomitant]
  3. LANSOPRAZOLE [Concomitant]
  4. PREDNISOLONE TAB [Concomitant]
  5. OXYCONTIN [Concomitant]
  6. TARCEVA [Suspect]
     Indication: LUNG SQUAMOUS CELL CARCINOMA STAGE IV
     Dosage: 150 MG, UID/QD, ORAL
     Route: 048
     Dates: start: 20090616, end: 20090629
  7. DEPAS (ETIZOLAM) [Concomitant]
  8. MEDICON (DEXTROMETHORPHAN HYDROBROMIDE) [Concomitant]
  9. MAGNESIUM OXIDE (MAGNESIUM OXIDE) [Concomitant]

REACTIONS (4)
  - DISSEMINATED INTRAVASCULAR COAGULATION [None]
  - INTERSTITIAL LUNG DISEASE [None]
  - PLEURAL EFFUSION [None]
  - LYMPHANGIOSIS CARCINOMATOSA [None]
